FAERS Safety Report 5370706-9 (Version None)
Quarter: 2007Q2

REPORT INFORMATION
  Report Type: 
  Country: None (occurrence: None)
  Receive Date: 20070618
  Receipt Date: 20061111
  Transmission Date: 20071010
  Serious: Yes (Death)
  Sender: FDA-Public Use
  Company Number: PHEH2006US14151

PATIENT

DRUGS (3)
  1. GLEEVEC [Suspect]
     Dosage: ORAL
     Route: 048
  2. ACETAMINOPHEN [Suspect]
  3. SYNTHROID [Suspect]

REACTIONS (1)
  - HEPATIC FAILURE [None]
